FAERS Safety Report 19657300 (Version 1)
Quarter: 2021Q3

REPORT INFORMATION
  Report Type: Spontaneous
  Country: US (occurrence: US)
  Receive Date: 20210804
  Receipt Date: 20210804
  Transmission Date: 20211014
  Serious: Yes (Hospitalization)
  Sender: FDA-Public Use
  Company Number: US-CELGENEUS-USA-20210707291

PATIENT
  Age: 54 Year
  Sex: Female
  Weight: 74.91 kg

DRUGS (2)
  1. POMALYST [Suspect]
     Active Substance: POMALIDOMIDE
     Indication: PLASMA CELL LEUKAEMIA
  2. POMALYST [Suspect]
     Active Substance: POMALIDOMIDE
     Indication: MYELODYSPLASTIC SYNDROME
     Dosage: 3 MILLIGRAM
     Route: 048
     Dates: start: 202107

REACTIONS (1)
  - Mental status changes [Unknown]

NARRATIVE: CASE EVENT DATE: 202107
